FAERS Safety Report 8925964 (Version 2)
Quarter: 2012Q4

REPORT INFORMATION
  Report Type: 
  Country: US (occurrence: US)
  Receive Date: 20121126
  Receipt Date: 20121128
  Transmission Date: 20130627
  Serious: Yes (Other)
  Sender: FDA-Public Use
  Company Number: PHEH2012US022770

PATIENT
  Age: 62 Year
  Sex: Male
  Weight: 90.7 kg

DRUGS (6)
  1. GILENYA [Suspect]
     Indication: MULTIPLE SCLEROSIS
     Dosage: 0.5 mg, QD
     Route: 048
     Dates: start: 20110804, end: 20120907
  2. TOPROL [Concomitant]
  3. AMPYRA [Concomitant]
     Dosage: 1 DF, BID
  4. BENICAR [Concomitant]
     Dosage: 1 DF, QD
  5. TRICOR [Concomitant]
     Dosage: 1 DF, QD
  6. PRILOSEC [Concomitant]
     Dosage: 1 DF, QD

REACTIONS (35)
  - Scotoma [Unknown]
  - Myocardial infarction [Recovered/Resolved with Sequelae]
  - Chest discomfort [Unknown]
  - Neck pain [Unknown]
  - Red cell distribution width increased [Unknown]
  - Musculoskeletal discomfort [Unknown]
  - Blood urea increased [Unknown]
  - Blood urea nitrogen/creatinine ratio increased [Unknown]
  - Blood cholesterol increased [Unknown]
  - High density lipoprotein decreased [Unknown]
  - Low density lipoprotein increased [Unknown]
  - Total cholesterol/HDL ratio decreased [Unknown]
  - Urticaria [Unknown]
  - Monocyte count increased [Unknown]
  - Pain of skin [Unknown]
  - Oropharyngeal pain [Unknown]
  - Myoglobin blood increased [Unknown]
  - Blood calcium decreased [Unknown]
  - Glomerular filtration rate decreased [Unknown]
  - Troponin I increased [Unknown]
  - Haematocrit decreased [Unknown]
  - Haemoglobin decreased [Unknown]
  - Platelet count decreased [Unknown]
  - Neutrophil count decreased [Unknown]
  - Muscle spasms [Unknown]
  - Arthralgia [Unknown]
  - Dyspepsia [Unknown]
  - Migraine [Unknown]
  - Herpes zoster [Recovering/Resolving]
  - Blood triglycerides increased [Unknown]
  - White blood cell count decreased [Unknown]
  - Lymphocyte count decreased [Unknown]
  - Multiple sclerosis relapse [Recovering/Resolving]
  - Hypoaesthesia [Unknown]
  - Gait spastic [Unknown]
